FAERS Safety Report 8866911 (Version 1)
Quarter: 2012Q4

REPORT INFORMATION
  Report Type: 
  Country: US (occurrence: US)
  Receive Date: 20121025
  Receipt Date: 20121025
  Transmission Date: 20130627
  Serious: No
  Sender: FDA-Public Use
  Company Number: US-AMGEN-USASP2012013827

PATIENT
  Age: 43 Year
  Sex: Male
  Weight: 68.48 kg

DRUGS (3)
  1. ENBREL [Suspect]
     Indication: PRODUCT USED FOR UNKNOWN INDICATION
     Dosage: 50 mg, qwk
     Route: 058
  2. LISINOPRIL [Concomitant]
     Dosage: 10 mg, UNK
  3. FISH OIL [Concomitant]
     Dosage: UNK

REACTIONS (1)
  - Nasopharyngitis [Unknown]
